FAERS Safety Report 5023777-3 (Version None)
Quarter: 2006Q2

REPORT INFORMATION
  Report Type: 
  Country: None (occurrence: None)
  Receive Date: 20060606
  Receipt Date: 20060518
  Transmission Date: 20061013
  Serious: Yes (Death)
  Sender: FDA-Public Use
  Company Number: WAES 0605USA03854

PATIENT
  Age: 46 Year
  Sex: Female

DRUGS (4)
  1. CANCIDAS [Suspect]
     Indication: BRONCHOPULMONARY ASPERGILLOSIS
     Dosage: 50 MG/DAILY IV
     Route: 042
     Dates: start: 20050511, end: 20050516
  2. AMIKACIN [Concomitant]
  3. CYTARABINE [Concomitant]
  4. PIPERACILLIN SODIUM (+) TAZOBACTAM SODIU [Concomitant]

REACTIONS (2)
  - HEPATIC FAILURE [None]
  - SEPTIC SHOCK [None]
